FAERS Safety Report 23923214 (Version 2)
Quarter: 2024Q2

REPORT INFORMATION
  Report Type: Spontaneous
  Country: US (occurrence: US)
  Receive Date: 20240531
  Receipt Date: 20240605
  Transmission Date: 20240716
  Serious: Yes (Hospitalization)
  Sender: FDA-Public Use
  Company Number: US-ABBVIE-5782166

PATIENT
  Sex: Male

DRUGS (2)
  1. DALVANCE [Suspect]
     Active Substance: DALBAVANCIN
     Indication: Product used for unknown indication
     Dosage: FORM STRENGTH: 500 MG POWDER, HAD TWO DOSE
     Route: 042
     Dates: start: 202401, end: 202401
  2. DALVANCE [Suspect]
     Active Substance: DALBAVANCIN
     Indication: Product used for unknown indication
     Dosage: FORM STRENGTH: 500 MG POWDER , HAD TWO DOSE
     Route: 042
     Dates: start: 202310, end: 202310

REACTIONS (1)
  - Hospitalisation [Unknown]

NARRATIVE: CASE EVENT DATE: 20240101
